FAERS Safety Report 9472174 (Version 4)
Quarter: 2016Q1

REPORT INFORMATION
  Report Type: Report from Study
  Country: US (occurrence: US)
  Receive Date: 20130823
  Receipt Date: 20160315
  Transmission Date: 20160526
  Serious: Yes (Other)
  Sender: FDA-Public Use
  Company Number: US-ROCHE-1264738

PATIENT
  Age: 41 Year
  Sex: Male

DRUGS (9)
  1. NALOXONE HCL [Concomitant]
     Active Substance: NALOXONE HYDROCHLORIDE
  2. COPEGUS [Suspect]
     Active Substance: RIBAVIRIN
     Dosage: HALF DOSE OF 600 MG (3 PILLS, ONE TIME ONCE A DAY BY MOUTH)
     Route: 048
     Dates: start: 20130815
  3. BUPRENORPHINE HCL [Concomitant]
     Active Substance: BUPRENORPHINE HYDROCHLORIDE
  4. COPEGUS [Suspect]
     Active Substance: RIBAVIRIN
     Dosage: 400MG AM AND 200MG PM
     Route: 048
     Dates: start: 20130408
  5. NAPROXEN. [Suspect]
     Active Substance: NAPROXEN
     Indication: PRODUCT USED FOR UNKNOWN INDICATION
     Route: 048
     Dates: start: 20130226
  6. TELAPREVIR [Suspect]
     Active Substance: TELAPREVIR
     Indication: PRODUCT USED FOR UNKNOWN INDICATION
     Route: 048
     Dates: start: 20130404
  7. PEGASYS [Suspect]
     Active Substance: PEGINTERFERON ALFA-2A
     Indication: CHRONIC HEPATITIS C
     Dosage: 180MCG 0.5ML 1 INJECTION Q MONDAY MORNING
     Route: 058
     Dates: start: 20130708
  8. COPEGUS [Suspect]
     Active Substance: RIBAVIRIN
     Indication: CHRONIC HEPATITIS C
     Route: 048
     Dates: start: 20130708
  9. PEGASYS [Suspect]
     Active Substance: PEGINTERFERON ALFA-2A
     Route: 058
     Dates: start: 20130408

REACTIONS (23)
  - Gastric disorder [Unknown]
  - Hypertension [Unknown]
  - Arthralgia [Unknown]
  - Overdose [Unknown]
  - Fatigue [Not Recovered/Not Resolved]
  - Vomiting [Unknown]
  - Haemoglobin decreased [Not Recovered/Not Resolved]
  - Pallor [Not Recovered/Not Resolved]
  - Dyspnoea [Not Recovered/Not Resolved]
  - Pain [Not Recovered/Not Resolved]
  - Staphylococcal infection [Unknown]
  - Irritability [Unknown]
  - Influenza like illness [Not Recovered/Not Resolved]
  - Hepatic steatosis [Unknown]
  - Viral load increased [Unknown]
  - Malaise [Not Recovered/Not Resolved]
  - Epistaxis [Unknown]
  - Leukopenia [Recovered/Resolved]
  - Syncope [Not Recovered/Not Resolved]
  - Dizziness [Not Recovered/Not Resolved]
  - Nausea [Not Recovered/Not Resolved]
  - Gait disturbance [Not Recovered/Not Resolved]
  - Musculoskeletal pain [Unknown]

NARRATIVE: CASE EVENT DATE: 20130814
